FAERS Safety Report 18905637 (Version 1)
Quarter: 2021Q1

REPORT INFORMATION
  Report Type: Spontaneous
  Country: US (occurrence: US)
  Receive Date: 20210217
  Receipt Date: 20210217
  Transmission Date: 20210420
  Serious: Yes (Other)
  Sender: FDA-Public Use
  Company Number: US-LUPIN PHARMACEUTICALS INC.-2021-01791

PATIENT
  Age: 78 Year
  Sex: Female
  Weight: 71.66 kg

DRUGS (2)
  1. RITUXIMAB. [Concomitant]
     Active Substance: RITUXIMAB
     Indication: IMMUNE SYSTEM DISORDER
     Dosage: UNK (EVERY 6 MONTHS)
     Route: 065
  2. VANCOMYCIN HYDROCHLORIDE CAPSULES USP 125 MG [Suspect]
     Active Substance: VANCOMYCIN HYDROCHLORIDE
     Indication: CLOSTRIDIUM DIFFICILE INFECTION
     Dosage: 125 MILLIGRAM, BID (TOOK ONE CAPSULE AT 5 PM AND TOOK ANOTHER PILL AT 11PM)
     Route: 048
     Dates: start: 20210204

REACTIONS (9)
  - Flatulence [Unknown]
  - Abdominal pain lower [Unknown]
  - Nausea [Unknown]
  - Condition aggravated [Unknown]
  - Tinnitus [Unknown]
  - Loss of consciousness [Unknown]
  - Feeling abnormal [Unknown]
  - Palpitations [Unknown]
  - Chest pain [Unknown]

NARRATIVE: CASE EVENT DATE: 2021
